FAERS Safety Report 6381779-9 (Version None)
Quarter: 2009Q3

REPORT INFORMATION
  Report Type: 
  Country: None (occurrence: None)
  Receive Date: 20090930
  Receipt Date: 20070917
  Transmission Date: 20100115
  Serious: Yes (Hospitalization)
  Sender: FDA-Public Use
  Company Number: US-ASTRAZENECA-2006UW23251

PATIENT
  Age: 15503 Day
  Sex: Male
  Weight: 73 kg

DRUGS (28)
  1. SEROQUEL [Suspect]
     Indication: AFFECTIVE DISORDER
     Route: 048
     Dates: start: 20040701
  2. SEROQUEL [Suspect]
     Indication: SLEEP DISORDER
     Route: 048
     Dates: start: 20040701
  3. SEROQUEL [Suspect]
     Indication: INSOMNIA
     Route: 048
     Dates: start: 20040701
  4. SEROQUEL [Suspect]
     Dosage: 50 MG TO 400 MG
     Route: 048
     Dates: start: 20040730
  5. SEROQUEL [Suspect]
     Dosage: 50 MG TO 400 MG
     Route: 048
     Dates: start: 20040730
  6. SEROQUEL [Suspect]
     Dosage: 50 MG TO 400 MG
     Route: 048
     Dates: start: 20040730
  7. PROZAC [Concomitant]
     Indication: DEPRESSED MOOD
     Dosage: 20 MG TO 40 MG
     Route: 048
     Dates: start: 20040101
  8. DEPAKOTE [Concomitant]
     Indication: AFFECTIVE DISORDER
     Dosage: 250 MG TO 500 MG
     Route: 048
     Dates: start: 20040730
  9. KLONOPIN [Concomitant]
     Route: 048
     Dates: start: 20041217
  10. LEXAPRO [Concomitant]
     Dosage: 10 MG TO 20 MG
     Route: 048
     Dates: start: 20040730
  11. NORVASC [Concomitant]
     Indication: HYPERTENSION
     Dosage: 5 MG TO 10 MG
     Route: 048
     Dates: start: 20040814
  12. ASA/ ECOTRIN [Concomitant]
     Route: 048
     Dates: start: 20010518
  13. LISINOPRIL [Concomitant]
     Indication: HYPERTENSION
     Route: 048
     Dates: start: 20040814
  14. ZOCOR [Concomitant]
     Indication: BLOOD CHOLESTEROL INCREASED
     Route: 048
     Dates: start: 20040814
  15. HYDROCHLOROTHIAZIDE [Concomitant]
     Indication: HYPERTENSION
     Dosage: 12.5 MG TO 25 MG
     Route: 048
     Dates: start: 20010518
  16. K DUR [Concomitant]
     Indication: HYPERTENSION
     Route: 048
     Dates: start: 20040629
  17. GLUCOPHAGE [Concomitant]
     Indication: DIABETES MELLITUS
     Dosage: 500 MG TO 1000 MG
     Route: 048
     Dates: start: 20021220
  18. TRAZODONE [Concomitant]
     Indication: SLEEP DISORDER
     Dosage: 50 MG TO 75 MG
     Dates: start: 20040629
  19. TRAZODONE [Concomitant]
     Indication: DEPRESSED MOOD
     Dosage: 50 MG TO 75 MG
     Dates: start: 20040629
  20. LOTREL [Concomitant]
     Indication: HYPERTENSION
     Dosage: 5/20 1 CAP/ DAY
     Dates: start: 20010518
  21. TRICOR [Concomitant]
     Dates: start: 20021220
  22. PRAVACHOL [Concomitant]
     Dates: start: 20010518
  23. VALPROIC ACID [Concomitant]
     Route: 048
     Dates: start: 20051108
  24. CELEXA [Concomitant]
     Indication: DEPRESSED MOOD
     Dosage: 30 MG TO 40 MG
     Dates: start: 20040629
  25. LITHIUM CARBONATE [Concomitant]
     Route: 048
     Dates: start: 20041217
  26. ENALAPRIL MALEATE [Concomitant]
     Indication: HYPERTENSION
     Dosage: 10 MG TO 20 MG
     Route: 048
     Dates: start: 20051108
  27. PAXIL [Concomitant]
     Indication: DEPRESSION
     Route: 048
     Dates: start: 20040731
  28. PAXIL [Concomitant]
     Indication: PANIC ATTACK
     Route: 048
     Dates: start: 20040731

REACTIONS (6)
  - DIABETES MELLITUS [None]
  - GENERALISED ANXIETY DISORDER [None]
  - INTENTIONAL OVERDOSE [None]
  - MAJOR DEPRESSION [None]
  - SCHIZOAFFECTIVE DISORDER [None]
  - SUICIDE ATTEMPT [None]
